FAERS Safety Report 6588692-2 (Version None)
Quarter: 2010Q1

REPORT INFORMATION
  Report Type: 
  Country: None (occurrence: None)
  Receive Date: 20100218
  Receipt Date: 20100204
  Transmission Date: 20100710
  Serious: Yes (Other)
  Sender: FDA-Public Use
  Company Number: A0844614A

PATIENT
  Age: 29 Year
  Sex: Female

DRUGS (1)
  1. NICODERM CQ [Suspect]
     Indication: DRUG USE FOR UNKNOWN INDICATION
     Route: 062

REACTIONS (6)
  - APPLICATION SITE ERYTHEMA [None]
  - CHEST DISCOMFORT [None]
  - DYSPNOEA [None]
  - NERVOUSNESS [None]
  - PANIC REACTION [None]
  - VISUAL IMPAIRMENT [None]
